FAERS Safety Report 8773246 (Version 1)
Quarter: 2012Q4

REPORT INFORMATION
  Report Type: 
  Country: US (occurrence: US)
  Receive Date: 20120907
  Receipt Date: 20120907
  Transmission Date: 20130627
  Serious: No
  Sender: FDA-Public Use
  Company Number: US-009507513-1208USA000021

PATIENT

DRUGS (1)
  1. PEG-INTRON [Suspect]
     Dosage: REDIPEN Pegintron IJ 150 Y

REACTIONS (2)
  - Drug dose omission [Unknown]
  - Product quality issue [Unknown]
